FAERS Safety Report 7672427-6 (Version None)
Quarter: 2011Q3

REPORT INFORMATION
  Report Type: 
  Country: None (occurrence: None)
  Receive Date: 20110809
  Receipt Date: 20110804
  Transmission Date: 20111222
  Serious: Yes (Life-Threatening, Hospitalization)
  Sender: FDA-Public Use
  Company Number: US-MERCK-1105USA01805

PATIENT
  Age: 57 Year
  Sex: Female

DRUGS (1)
  1. FOSAMAX [Suspect]
     Route: 048
     Dates: start: 20090619, end: 20110307

REACTIONS (7)
  - DYSPNOEA [None]
  - INCREASED BRONCHIAL SECRETION [None]
  - WHEEZING [None]
  - PRODUCT LABEL ISSUE [None]
  - BRONCHIAL OEDEMA [None]
  - PRODUCTIVE COUGH [None]
  - FOREIGN BODY [None]
